FAERS Safety Report 6098618-6 (Version None)
Quarter: 2009Q1

REPORT INFORMATION
  Report Type: 
  Country: None (occurrence: None)
  Receive Date: 20090302
  Receipt Date: 20090225
  Transmission Date: 20090719
  Serious: Yes (Life-Threatening, Hospitalization)
  Sender: FDA-Public Use
  Company Number: JP-BRISTOL-MYERS SQUIBB COMPANY-14416549

PATIENT
  Age: 57 Year
  Sex: Female

DRUGS (2)
  1. TAXOL [Suspect]
     Indication: OVARIAN CANCER
     Dosage: STARTED ON 10SEP08;THERAPY DUR 3DAYS 1ST COURSE 20SEP08;2ND COURSE 01OCT08;3RD COURSE ON 22OCT08.
     Route: 041
     Dates: start: 20081022, end: 20081022
  2. PARAPLATIN [Suspect]
     Indication: OVARIAN CANCER
     Dosage: STARTED ON 10SEP08;THERAPY DUR 3DAYS;1ST COURSE 20SEP08;2ND COURSE 01OCT08;3RD COURSE ON 22OCT08.
     Route: 041
     Dates: start: 20081022, end: 20081022

REACTIONS (4)
  - INTESTINAL OBSTRUCTION [None]
  - MYALGIA [None]
  - SEPSIS [None]
  - SMALL INTESTINAL PERFORATION [None]
